FAERS Safety Report 8290749-5 (Version None)
Quarter: 2012Q2

REPORT INFORMATION
  Report Type: 
  Country: None (occurrence: None)
  Receive Date: 20120417
  Receipt Date: 20120406
  Transmission Date: 20120825
  Serious: Yes (Hospitalization)
  Sender: FDA-Public Use
  Company Number: US-ACTELION-A-US2012-62216

PATIENT

DRUGS (4)
  1. PLAVIX [Concomitant]
  2. CALCIUM CHANNEL BLOCKERS [Concomitant]
  3. TRACLEER [Suspect]
     Indication: PULMONARY ARTERIAL HYPERTENSION
     Dosage: UNK MG, UNK
     Route: 048
     Dates: start: 20090130
  4. ADCIRCA [Concomitant]

REACTIONS (3)
  - MECHANICAL VENTILATION [None]
  - PULMONARY OEDEMA [None]
  - RESPIRATORY ARREST [None]
